FAERS Safety Report 7052470-0 (Version None)
Quarter: 2010Q4

REPORT INFORMATION
  Report Type: 
  Country: None (occurrence: None)
  Receive Date: 20101019
  Receipt Date: 20101006
  Transmission Date: 20110411
  Serious: Yes (Death)
  Sender: FDA-Public Use
  Company Number: US-MYLANLABS-2010S1018608

PATIENT
  Age: 31 Year
  Sex: Male

DRUGS (4)
  1. FENTANYL CITRATE [Suspect]
     Indication: PAIN
     Route: 062
     Dates: start: 20080901
  2. ETHANOL [Suspect]
  3. ALPRAZOLAM [Suspect]
  4. HYDROCODONE [Concomitant]

REACTIONS (3)
  - DRUG PRESCRIBING ERROR [None]
  - DRUG TOXICITY [None]
  - OVERDOSE [None]
